FAERS Safety Report 23841162 (Version 1)
Quarter: 2024Q2

REPORT INFORMATION
  Report Type: Other
  Country: CN (occurrence: None)
  Receive Date: 20240510
  Receipt Date: 20240510
  Transmission Date: 20240716
  Serious: Yes (Other)
  Sender: FDA-Public Use
  Company Number: CN-ROCHE-3558475

PATIENT

DRUGS (5)
  1. ATEZOLIZUMAB [Suspect]
     Active Substance: ATEZOLIZUMAB
     Indication: Ovarian cancer
     Dosage: THE FIRST IV INFUSION SHOULD BE ADMINISTERED OVER AT LEAST 60 MINUTES. IF THE PATIENT TOLERATED WELL
     Route: 041
  2. PACLITAXEL [Suspect]
     Active Substance: PACLITAXEL
     Indication: Ovarian cancer
     Dosage: 21 DAYS AS A CYCLE OF CHEMOTHERAPY FOR A TOTAL OF 6 CYCLES.
     Route: 041
  3. CARBOPLATIN [Suspect]
     Active Substance: CARBOPLATIN
     Indication: Ovarian cancer
     Dosage: AUC5 DILUTED WITH NORMAL SALINE FOR INTRAVENOUS DRIP FOR 3H. 21 DAYS AS A CYCLE OF CHEMOTHERAPY FOR
     Route: 041
  4. DEXAMETHASONE [Concomitant]
     Active Substance: DEXAMETHASONE
     Indication: Hypersensitivity
     Route: 048
  5. DIPHENHYDRAMINE [Concomitant]
     Active Substance: DIPHENHYDRAMINE
     Indication: Hypersensitivity
     Route: 030

REACTIONS (4)
  - Intestinal perforation [Unknown]
  - Peritonitis [Unknown]
  - Myelosuppression [Unknown]
  - Renal impairment [Unknown]
